FAERS Safety Report 9405438 (Version 1)
Quarter: 2013Q3

REPORT INFORMATION
  Report Type: Spontaneous
  Country: FR (occurrence: None)
  Receive Date: 20130715
  Receipt Date: 20130715
  Transmission Date: 20140515
  Serious: Yes (Hospitalization)
  Sender: FDA-Public Use
  Company Number: 1786674

PATIENT
  Sex: 0

DRUGS (4)
  1. CARBOPLATIN [Suspect]
     Indication: OVARIAN CANCER
     Dates: start: 20130222, end: 20130222
  2. ENDOXAN [Concomitant]
  3. METHYLPREDNISOLONE [Concomitant]
  4. ZOPHREN [Concomitant]

REACTIONS (7)
  - Chest pain [None]
  - Hyperhidrosis [None]
  - Malaise [None]
  - Abdominal pain [None]
  - Dyspnoea [None]
  - Blood pressure abnormal [None]
  - Oxygen saturation decreased [None]
